FAERS Safety Report 19301030 (Version 7)
Quarter: 2021Q4

REPORT INFORMATION
  Report Type: Report from Study
  Country: US (occurrence: US)
  Receive Date: 20210525
  Receipt Date: 20211013
  Transmission Date: 20220303
  Serious: No
  Sender: FDA-Public Use
  Company Number: US-NOVARTISPH-NVSC2021US113176

PATIENT
  Age: 54 Year
  Sex: Female

DRUGS (1)
  1. KESIMPTA [Suspect]
     Active Substance: OFATUMUMAB
     Indication: Relapsing-remitting multiple sclerosis
     Dosage: 20 MG (BENEATH THE SKIN USUALLY VIA INJECTION) (COMPLETED LOADING DOSES,7/9 WAS FIRST MONTHLY INJECT
     Route: 058
     Dates: start: 20210611, end: 20210709

REACTIONS (7)
  - Urticaria [Recovered/Resolved with Sequelae]
  - Hepatic enzyme increased [Unknown]
  - Nausea [Unknown]
  - Paraesthesia [Unknown]
  - Eye swelling [Unknown]
  - Lip swelling [Recovered/Resolved with Sequelae]
  - Headache [Unknown]

NARRATIVE: CASE EVENT DATE: 20210712
